FAERS Safety Report 9160318 (Version 2)
Quarter: 2013Q1

REPORT INFORMATION
  Report Type: Spontaneous
  Country: GB (occurrence: None)
  Receive Date: 20130219
  Receipt Date: 20130221
  Transmission Date: 20140127
  Serious: Yes (Other)
  Sender: FDA-Public Use
  Company Number: AUR-APL-2013-01371

PATIENT
  Age: 33 Year
  Sex: Female

DRUGS (1)
  1. RAMIPRIL [Suspect]
     Indication: HYPERTENSION
     Route: 048
     Dates: start: 20120903, end: 20120906

REACTIONS (4)
  - Feeling drunk [None]
  - Disorientation [None]
  - Nausea [None]
  - Affect lability [None]
